FAERS Safety Report 23312878 (Version 1)
Quarter: 2023Q4

REPORT INFORMATION
  Report Type: Spontaneous
  Country: GB (occurrence: GB)
  Receive Date: 20231219
  Receipt Date: 20231219
  Transmission Date: 20240109
  Serious: Yes (Disabling)
  Sender: FDA-Public Use
  Company Number: None

PATIENT
  Age: 56 Year
  Sex: Female
  Weight: 72 kg

DRUGS (14)
  1. MONTELUKAST [Suspect]
     Active Substance: MONTELUKAST SODIUM
     Indication: Product used for unknown indication
     Dosage: AT NIGHT
     Route: 048
     Dates: start: 20231013
  2. BECLOMETHASONE DIPROPIONATE [Concomitant]
     Active Substance: BECLOMETHASONE DIPROPIONATE
     Dosage: TWO APPLICATIONS OF SPRAY IN BOTH NOSTRILS TWIC...
     Route: 045
     Dates: start: 20231108, end: 20231109
  3. CLARITHROMYCIN [Concomitant]
     Active Substance: CLARITHROMYCIN
     Dosage: FOR 14 DAYS
     Dates: start: 20231110, end: 20231124
  4. DOXYCYCLINE [Concomitant]
     Active Substance: DOXYCYCLINE
     Dosage: TWO TABLETS NOW, THEN ONE TABLET DAILY FOR NEXT FOUR DAYS
     Route: 048
     Dates: start: 20231009, end: 20231014
  5. ESTRADIOL [Concomitant]
     Active Substance: ESTRADIOL
     Dosage: APPLY
     Route: 061
     Dates: start: 20230629
  6. FLUTICASONE [Concomitant]
     Active Substance: FLUTICASONE
     Dosage: TWO SPRAYS ONCE DAILY TO EACH NOSTRIL. ONCE UND...
     Route: 045
     Dates: start: 20231103
  7. BECLOMETHASONE\FORMOTEROL [Concomitant]
     Active Substance: BECLOMETHASONE\FORMOTEROL
     Dates: start: 20230629
  8. NAPROXEN [Concomitant]
     Active Substance: NAPROXEN
     Dates: start: 20231123
  9. OMEPRAZOLE [Concomitant]
     Active Substance: OMEPRAZOLE
     Route: 048
     Dates: start: 20230629
  10. PREDNISOLONE [Concomitant]
     Active Substance: PREDNISOLONE
     Dosage: FOR 5 DAYS
     Route: 048
     Dates: start: 20231030, end: 20231102
  11. PROMETHAZINE HYDROCHLORIDE [Concomitant]
     Active Substance: PROMETHAZINE HYDROCHLORIDE
     Dosage: ONE OR TWO TABLETS TO BE TAKEN AT NIGHT
     Route: 048
     Dates: start: 20230629
  12. ALBUTEROL [Concomitant]
     Active Substance: ALBUTEROL
     Dosage: AS NECESSARY INHALATIONAL
     Dates: start: 20230629
  13. SERTRALINE [Concomitant]
     Active Substance: SERTRALINE HYDROCHLORIDE
     Dates: start: 20230629
  14. THIAMINE [Concomitant]
     Active Substance: THIAMINE
     Route: 048
     Dates: start: 20230629

REACTIONS (6)
  - Akathisia [Unknown]
  - Dry mouth [Unknown]
  - Dysgraphia [Unknown]
  - Mouth ulceration [Unknown]
  - Movement disorder [Unknown]
  - Malaise [Unknown]
